FAERS Safety Report 22380781 (Version 5)
Quarter: 2024Q1

REPORT INFORMATION
  Report Type: Report from Study
  Country: JP (occurrence: JP)
  Receive Date: 20230530
  Receipt Date: 20240203
  Transmission Date: 20240409
  Serious: Yes (Death, Other)
  Sender: FDA-Public Use
  Company Number: JP-TAKEDA-2023TJP006443

PATIENT
  Age: 64 Year
  Sex: Male

DRUGS (15)
  1. LEUPLIN [Suspect]
     Active Substance: LEUPROLIDE ACETATE
     Indication: Bulbospinal muscular atrophy congenital
     Dosage: 11.25 MILLIGRAM, Q3MONTHS
     Route: 058
     Dates: start: 20190214, end: 20221107
  2. BELSOMRA [Concomitant]
     Active Substance: SUVOREXANT
     Indication: Product used for unknown indication
     Dosage: 15 MILLIGRAM, QD
     Route: 048
  3. METHYLCOBALAMIN [Concomitant]
     Active Substance: METHYLCOBALAMIN
     Indication: Product used for unknown indication
     Dosage: TIME INTERVAL: 0.33333333 DAYS: 500 MICROGRAM, TID
     Route: 048
  4. CELLULASE\DIASTASE\LIPASE [Concomitant]
     Active Substance: CELLULASE\DIASTASE\LIPASE
     Indication: Product used for unknown indication
     Dosage: TIME INTERVAL: 0.33333333 DAYS: 1 GRAM, TID
     Route: 048
  5. LYRICA [Concomitant]
     Active Substance: PREGABALIN
     Indication: Product used for unknown indication
     Dosage: 150 MILLIGRAM, BID
     Route: 048
  6. SHAKUYAKUKANZOTO [Concomitant]
     Active Substance: HERBALS
     Indication: Product used for unknown indication
     Dosage: TIME INTERVAL: 0.33333333 DAYS: 2.5 GRAM, TID
     Route: 048
  7. KETOPROFEN [Concomitant]
     Active Substance: KETOPROFEN
     Indication: Product used for unknown indication
     Dosage: 20 MILLIGRAM, QD
     Route: 062
  8. KETOPROFEN [Concomitant]
     Active Substance: KETOPROFEN
     Indication: Product used for unknown indication
     Dosage: 40 MILLIGRAM, QD
     Route: 062
  9. LOXOPROFEN SODIUM [Concomitant]
     Active Substance: LOXOPROFEN SODIUM
     Indication: Product used for unknown indication
     Route: 062
  10. TRAMCET [Concomitant]
     Active Substance: ACETAMINOPHEN\TRAMADOL
     Indication: Product used for unknown indication
     Dosage: 7 DOSAGE FORM
     Route: 048
  11. URSODIOL [Concomitant]
     Active Substance: URSODIOL
     Indication: Product used for unknown indication
     Dosage: TIME INTERVAL: 0.33333333 DAYS: 100 MILLIGRAM, TID
     Route: 048
  12. NEXIUM [Concomitant]
     Active Substance: ESOMEPRAZOLE MAGNESIUM
     Indication: Product used for unknown indication
     Dosage: 20 MILLIGRAM, QD
     Route: 048
  13. VOLTAREN [Concomitant]
     Active Substance: DICLOFENAC SODIUM
     Indication: Product used for unknown indication
     Dosage: 25 MILLIGRAM
     Route: 048
  14. LOXOPROFEN [Concomitant]
     Active Substance: LOXOPROFEN
     Indication: Product used for unknown indication
     Dosage: 60 MILLIGRAM
     Route: 048
  15. BONALON [Concomitant]
     Active Substance: ALENDRONATE SODIUM
     Indication: Product used for unknown indication
     Dosage: 35 MILLIGRAM, 1/WEEK
     Route: 048

REACTIONS (1)
  - Death [Fatal]

NARRATIVE: CASE EVENT DATE: 20230201
